FAERS Safety Report 8189222-4 (Version None)
Quarter: 2012Q1

REPORT INFORMATION
  Report Type: 
  Country: None (occurrence: None)
  Receive Date: 20120307
  Receipt Date: 20120228
  Transmission Date: 20120608
  Serious: Yes (Hospitalization, Other)
  Sender: FDA-Public Use
  Company Number: US-BAYER-201035408NA

PATIENT
  Age: 45 Year
  Sex: Female
  Weight: 73.923 kg

DRUGS (2)
  1. YASMIN [Suspect]
     Indication: CONTRACEPTION
     Dosage: UNK
     Route: 048
     Dates: start: 20060201, end: 20071101
  2. YAZ [Suspect]
     Indication: CONTRACEPTION
     Dosage: UNK
     Dates: start: 20071201, end: 20090101

REACTIONS (10)
  - CHOLECYSTECTOMY [None]
  - FLATULENCE [None]
  - DYSPEPSIA [None]
  - CONSTIPATION [None]
  - DIARRHOEA [None]
  - ABDOMINAL DISTENSION [None]
  - ANXIETY [None]
  - CHOLECYSTITIS CHRONIC [None]
  - SCAR [None]
  - DEPRESSION [None]
